FAERS Safety Report 6380935-3 (Version None)
Quarter: 2009Q3

REPORT INFORMATION
  Report Type: 
  Country: None (occurrence: None)
  Receive Date: 20090924
  Receipt Date: 20090914
  Transmission Date: 20100115
  Serious: Yes (Hospitalization)
  Sender: FDA-Public Use
  Company Number: 2009FS0208

PATIENT
  Age: 57 Year
  Sex: Female

DRUGS (2)
  1. NITROFURANTOIN [Suspect]
     Indication: CULTURE URINE POSITIVE
  2. NITROFURANTOIN [Suspect]
     Indication: ESCHERICHIA INFECTION

REACTIONS (5)
  - HEPATITIS [None]
  - HYPERSENSITIVITY [None]
  - IMMUNE SYSTEM DISORDER [None]
  - INFECTION [None]
  - NEPHRITIS [None]
